FAERS Safety Report 15777005 (Version 2)
Quarter: 2019Q1

REPORT INFORMATION
  Report Type: Spontaneous
  Country: US (occurrence: US)
  Receive Date: 20181231
  Receipt Date: 20190107
  Transmission Date: 20190417
  Serious: No
  Sender: FDA-Public Use
  Company Number: US-SUNOVION-2018SUN005027

PATIENT
  Sex: Female

DRUGS (1)
  1. APTIOM [Suspect]
     Active Substance: ESLICARBAZEPINE ACETATE
     Dosage: 600 MG
     Route: 048

REACTIONS (5)
  - Blood sodium decreased [Unknown]
  - Mood altered [Unknown]
  - Anxiety [Unknown]
  - Gait inability [Unknown]
  - Confusional state [Unknown]
